FAERS Safety Report 11505719 (Version 1)
Quarter: 2015Q3

REPORT INFORMATION
  Report Type: Spontaneous
  Country: US (occurrence: None)
  Receive Date: 20150914
  Receipt Date: 20150914
  Transmission Date: 20151125
  Serious: No
  Sender: FDA-Public Use
  Company Number: None

PATIENT
  Sex: Male

DRUGS (3)
  1. AZITINROMYCIN [Concomitant]
  2. SINGULAIR CAYSTON [Concomitant]
  3. PULMOZYME [Suspect]
     Active Substance: DORNASE ALFA
     Indication: CYSTIC FIBROSIS
     Dosage: NEB

REACTIONS (1)
  - Infective pulmonary exacerbation of cystic fibrosis [None]
